FAERS Safety Report 5140436-7 (Version None)
Quarter: 2006Q4

REPORT INFORMATION
  Report Type: 
  Country: None (occurrence: None)
  Receive Date: 20061026
  Receipt Date: 20061026
  Transmission Date: 20070319
  Serious: Yes (Hospitalization)
  Sender: FDA-Public Use
  Company Number: None

PATIENT
  Sex: Male
  Weight: 75.6 kg

DRUGS (8)
  1. BORTEZOMIB          MILLENIUM [Suspect]
     Indication: MULTIPLE MYELOMA
     Dosage: 1.3 MG/ M2    DAYS 1,4,8 AND 11   IV
     Route: 042
     Dates: start: 20060929, end: 20060929
  2. DOXORUBICIN HCL [Suspect]
     Indication: MULTIPLE MYELOMA
     Dosage: 15 MG/ M2    DAYS 1 AND 8   IV
     Route: 042
     Dates: start: 20060926, end: 20060926
  3. GABAPENTIN [Concomitant]
  4. AZITHROMYCIN [Concomitant]
  5. PRAVASTATIN [Concomitant]
  6. ACYCLOVIR [Concomitant]
  7. ZOMETA [Concomitant]
  8. DOCUSATE [Concomitant]

REACTIONS (6)
  - COUGH [None]
  - DISCOMFORT [None]
  - FEBRILE NEUTROPENIA [None]
  - NASAL CONGESTION [None]
  - PHARYNGOLARYNGEAL PAIN [None]
  - RALES [None]
